FAERS Safety Report 4523552-X (Version None)
Quarter: 2004Q4

REPORT INFORMATION
  Report Type: 
  Country: None (occurrence: None)
  Receive Date: 20041210
  Receipt Date: 20041004
  Transmission Date: 20050328
  Serious: Yes (Other)
  Sender: FDA-Public Use
  Company Number: US-ROCHE-382230

PATIENT
  Age: 50 Year
  Sex: Female
  Weight: 84.5 kg

DRUGS (5)
  1. PEG-INTERFERON ALFA 2A (RO 25-8310) [Suspect]
     Dosage: GIVEN AT BED TIME
     Route: 058
     Dates: start: 20031030, end: 20040923
  2. BLINDED THYMOSIN ALFA 1 [Suspect]
     Dosage: TAKEN IN THE MORNING
     Route: 050
     Dates: start: 20031031, end: 20040927
  3. BENADRYL [Concomitant]
     Route: 048
     Dates: start: 20000615
  4. AMARYL [Concomitant]
     Route: 048
     Dates: start: 20040126
  5. TYLENOL (CAPLET) [Concomitant]
     Route: 048
     Dates: start: 20031030

REACTIONS (5)
  - BREAST MICROCALCIFICATION [None]
  - GRAVITATIONAL OEDEMA [None]
  - HYPERVENTILATION [None]
  - SARCOIDOSIS [None]
  - THYROID CYST [None]
